FAERS Safety Report 6635716-X (Version None)
Quarter: 2010Q1

REPORT INFORMATION
  Report Type: 
  Country: None (occurrence: None)
  Receive Date: 20100312
  Receipt Date: 20100312
  Transmission Date: 20100710
  Serious: Yes (Other)
  Sender: FDA-Public Use
  Company Number: None

PATIENT
  Sex: Female
  Weight: 97.5234 kg

DRUGS (1)
  1. ZYRTEC [Suspect]
     Indication: SEASONAL ALLERGY
     Dates: start: 20040512, end: 20100312

REACTIONS (3)
  - DRUG WITHDRAWAL SYNDROME [None]
  - PRURITUS [None]
  - URTICARIA [None]
